FAERS Safety Report 7423381-3 (Version None)
Quarter: 2011Q2

REPORT INFORMATION
  Report Type: 
  Country: None (occurrence: None)
  Receive Date: 20110419
  Receipt Date: 20110406
  Transmission Date: 20111010
  Serious: Yes (Other)
  Sender: FDA-Public Use
  Company Number: PHHY2011US11759

PATIENT
  Sex: Female

DRUGS (9)
  1. ASPIRIN [Concomitant]
     Dosage: 81 MG,DAILY
  2. MEGESTROL ACETATE [Concomitant]
  3. OXYCODONE HCL [Suspect]
  4. ACETAMINOPHEN [Concomitant]
     Dosage: EXTRA STRENGTH SOMETIMES
  5. FEMARA [Suspect]
     Dosage: 1 DF, QD
     Route: 048
  6. ATENOLOL [Concomitant]
     Dosage: TWICE A DAY
  7. LORAZEPAM [Suspect]
  8. CHEMOTHERAPEUTICS NOS [Suspect]
  9. TEMAZEPAM [Concomitant]
     Dosage: 30 MG, UNK

REACTIONS (7)
  - FATIGUE [None]
  - SLEEP DISORDER [None]
  - ARTHRALGIA [None]
  - OVARIAN CANCER [None]
  - NIGHT SWEATS [None]
  - MYALGIA [None]
  - ABDOMINAL DISCOMFORT [None]
